FAERS Safety Report 15777323 (Version 1)
Quarter: 2018Q4

REPORT INFORMATION
  Report Type: Spontaneous
  Country: CN (occurrence: CN)
  Receive Date: 20181231
  Receipt Date: 20181231
  Transmission Date: 20190205
  Serious: Yes (Other)
  Sender: FDA-Public Use
  Company Number: CN-OTSUKA-2018_040254

PATIENT
  Age: 23 Year
  Sex: Female
  Weight: 72.5 kg

DRUGS (1)
  1. BUSULFAN. [Suspect]
     Active Substance: BUSULFAN
     Indication: ACUTE MYELOMONOCYTIC LEUKAEMIA
     Dosage: 8.1 ML, QID
     Route: 042
     Dates: start: 20180627, end: 20180630

REACTIONS (2)
  - Epilepsy [Recovered/Resolved]
  - Product use in unapproved indication [Unknown]

NARRATIVE: CASE EVENT DATE: 20180630
